FAERS Safety Report 22527963 (Version 3)
Quarter: 2023Q2

REPORT INFORMATION
  Report Type: Spontaneous
  Country: BR (occurrence: BR)
  Receive Date: 20230606
  Receipt Date: 20230623
  Transmission Date: 20230721
  Serious: Yes (Hospitalization, Other)
  Sender: FDA-Public Use
  Company Number: BR-BIOGEN-2023BI01208616

PATIENT
  Age: 7 Year

DRUGS (2)
  1. SPINRAZA [Suspect]
     Active Substance: NUSINERSEN
     Indication: Spinal muscular atrophy
     Route: 050
     Dates: start: 20181022
  2. SPINRAZA [Suspect]
     Active Substance: NUSINERSEN
     Route: 050
     Dates: start: 202304

REACTIONS (10)
  - Loss of consciousness [Unknown]
  - Hypertonia [Unknown]
  - Somnolence [Unknown]
  - Blood sodium increased [Unknown]
  - Coma [Unknown]
  - Seizure [Unknown]
  - Hyponatraemia [Unknown]
  - Confusional state [Not Recovered/Not Resolved]
  - Blood potassium decreased [Unknown]
  - C-reactive protein increased [Unknown]

NARRATIVE: CASE EVENT DATE: 20230528
